FAERS Safety Report 6546500-X (Version None)
Quarter: 2010Q1

REPORT INFORMATION
  Report Type: 
  Country: None (occurrence: None)
  Receive Date: 20100114
  Receipt Date: 20091104
  Transmission Date: 20100710
  Serious: No
  Sender: FDA-Public Use
  Company Number: 2009BM000296

PATIENT
  Age: 25 Year
  Sex: Male
  Weight: 76 kg

DRUGS (1)
  1. KUVAN [Suspect]
     Indication: PHENYLKETONURIA
     Dosage: 1500 MG;QD
     Dates: start: 20080318

REACTIONS (1)
  - HAEMATOCHEZIA [None]
